FAERS Safety Report 19968861 (Version 1)
Quarter: 2021Q4

REPORT INFORMATION
  Report Type: Spontaneous
  Country: US (occurrence: US)
  Receive Date: 20211016
  Receipt Date: 20211016
  Transmission Date: 20220303
  Serious: Yes (Death)
  Sender: FDA-Public Use
  Company Number: None

PATIENT
  Age: 77 Year
  Sex: Female

DRUGS (1)
  1. POMALYST [Suspect]
     Active Substance: POMALIDOMIDE
     Indication: Plasma cell myeloma
     Route: 048
     Dates: start: 20210917, end: 20210927

REACTIONS (7)
  - Acute respiratory failure [None]
  - Hypervolaemia [None]
  - Atrial fibrillation [None]
  - Platelet transfusion [None]
  - Transfusion [None]
  - Packed red blood cell transfusion [None]
  - Dyslipidaemia [None]

NARRATIVE: CASE EVENT DATE: 20211009
